FAERS Safety Report 9543449 (Version 2)
Quarter: 2013Q3

REPORT INFORMATION
  Report Type: Spontaneous
  Country: AU (occurrence: AU)
  Receive Date: 20130923
  Receipt Date: 20130923
  Transmission Date: 20140515
  Serious: Yes (Hospitalization, Other)
  Sender: FDA-Public Use
  Company Number: AU-009507513-2012SP034418

PATIENT
  Age: 50 Year
  Sex: Male

DRUGS (2)
  1. CLARATYNE [Suspect]
     Dosage: UNK UNK, UNKNOWN
     Route: 048
  2. SEROQUEL [Concomitant]
     Indication: NONSPECIFIC REACTION
     Dosage: UNK UNK, UNKNOWN
     Route: 065

REACTIONS (2)
  - Hypersensitivity [Unknown]
  - Tachycardia [Unknown]
